FAERS Safety Report 17588700 (Version 17)
Quarter: 2022Q2

REPORT INFORMATION
  Report Type: Report from Study
  Country: IL (occurrence: None)
  Receive Date: 20200327
  Receipt Date: 20220414
  Transmission Date: 20220721
  Serious: Yes (Hospitalization)
  Sender: FDA-Public Use
  Company Number: IL-ROCHE-2557955

PATIENT
  Age: 46 Year
  Sex: Female
  Weight: 49.6 kg

DRUGS (48)
  1. ATEZOLIZUMAB [Suspect]
     Active Substance: ATEZOLIZUMAB
     Indication: Malignant neoplasm of unknown primary site
     Dosage: ON 10/FEB/2020 RECEIVED LAST DOSE OF ATEZOLIZUMAB OF 1200 MG PRIOR TO SERIOUS ADVERSE EVENT ONSET
     Route: 041
     Dates: start: 20200210
  2. CISPLATIN [Suspect]
     Active Substance: CISPLATIN
     Indication: Malignant neoplasm of unknown primary site
     Dosage: 60-75 MG/M2?DOSE OF LAST INDUCTION STUDY DRUG 1 ADMINISTERED PRIOR TO SAE/AESI ONSET 115?DATE OF LAS
     Route: 042
     Dates: start: 20191202
  3. CISPLATIN [Suspect]
     Active Substance: CISPLATIN
     Dosage: 60-75 MG/M^2?DOSE OF LAST TREATMENT STUDY DRUG 1 ADMINISTERED PRIOR TO SAE/AESI ONSET 112 MG?DATE OF
     Route: 042
     Dates: start: 20200210
  4. GEMCITABINE [Suspect]
     Active Substance: GEMCITABINE
     Indication: Malignant neoplasm of unknown primary site
     Dosage: DOSE OF LAST INDUCTION STUDY DRUG 2 ADMINISTERED PRIOR TO SAE/AESI ONSET 1530 MG ?DATE OF LAST DOSE
     Route: 042
     Dates: start: 20191202
  5. GEMCITABINE [Suspect]
     Active Substance: GEMCITABINE
     Dosage: DOSE OF LAST TREATMENT STUDY DRUG 2 ADMINISTERED PRIOR TO SAE/AESI ONSET  1489?DATE OF LAST DOSE OF
     Route: 042
     Dates: start: 20200210
  6. IMIPRAMINE [Concomitant]
     Active Substance: IMIPRAMINE
     Route: 048
     Dates: start: 20191113
  7. GLUCAGEN HYPOKIT [Concomitant]
     Active Substance: GLUCAGON HYDROCHLORIDE
     Route: 058
     Dates: start: 20191128
  8. AKYNZEO (NETUPITANT\PALONOSETRON) [Concomitant]
     Active Substance: NETUPITANT\PALONOSETRON
     Route: 048
     Dates: start: 20191202
  9. ENOXAPARIN SODIUM [Concomitant]
     Active Substance: ENOXAPARIN SODIUM
     Route: 058
     Dates: start: 20200220, end: 20200224
  10. IMODIUM [Concomitant]
     Active Substance: LOPERAMIDE HYDROCHLORIDE
     Indication: Diarrhoea
     Route: 048
     Dates: start: 20200215
  11. KONAKION [Concomitant]
     Active Substance: PHYTONADIONE
     Route: 048
     Dates: start: 20200227, end: 20200227
  12. ENOXAPARIN SODIUM [Concomitant]
     Active Substance: ENOXAPARIN SODIUM
     Route: 058
     Dates: start: 20190926, end: 20200220
  13. ENOXAPARIN SODIUM [Concomitant]
     Active Substance: ENOXAPARIN SODIUM
     Route: 058
     Dates: start: 20200220, end: 20200224
  14. POTASSIUM CHLORIDE [Concomitant]
     Active Substance: POTASSIUM CHLORIDE
     Route: 042
     Dates: start: 20191202, end: 20200210
  15. DEXAMETHASONE [Concomitant]
     Active Substance: DEXAMETHASONE
     Route: 048
     Dates: start: 20191224, end: 20191224
  16. DEXAMETHASONE [Concomitant]
     Active Substance: DEXAMETHASONE
     Route: 048
     Dates: start: 20191225, end: 20191225
  17. DEXAMETHASONE [Concomitant]
     Active Substance: DEXAMETHASONE
     Route: 048
     Dates: start: 20191226, end: 20191226
  18. DEXAMETHASONE [Concomitant]
     Active Substance: DEXAMETHASONE
     Route: 048
     Dates: start: 20200114, end: 20200114
  19. DEXAMETHASONE [Concomitant]
     Active Substance: DEXAMETHASONE
     Route: 048
     Dates: start: 20200115, end: 20200115
  20. DEXAMETHASONE [Concomitant]
     Active Substance: DEXAMETHASONE
     Route: 048
     Dates: start: 20200116, end: 20200116
  21. DEXAMETHASONE [Concomitant]
     Active Substance: DEXAMETHASONE
     Route: 048
     Dates: start: 20191227, end: 20191227
  22. DEXAMETHASONE [Concomitant]
     Active Substance: DEXAMETHASONE
     Route: 048
     Dates: start: 20191228, end: 20191228
  23. DEXAMETHASONE [Concomitant]
     Active Substance: DEXAMETHASONE
     Route: 048
     Dates: start: 20191229, end: 20191229
  24. DEXAMETHASONE [Concomitant]
     Active Substance: DEXAMETHASONE
     Route: 047
     Dates: start: 20200117, end: 20200117
  25. DEXAMETHASONE [Concomitant]
     Active Substance: DEXAMETHASONE
     Route: 048
     Dates: start: 20200118, end: 20200118
  26. DEXAMETHASONE [Concomitant]
     Active Substance: DEXAMETHASONE
     Route: 048
     Dates: start: 20200119, end: 20200119
  27. LOSEC [Concomitant]
     Active Substance: OMEPRAZOLE
     Route: 048
     Dates: start: 20191224, end: 20191229
  28. LOSEC [Concomitant]
     Active Substance: OMEPRAZOLE
     Route: 048
     Dates: start: 20200204, end: 20200209
  29. LOSEC [Concomitant]
     Active Substance: OMEPRAZOLE
     Route: 048
     Dates: start: 20200225, end: 20200301
  30. LOSEC [Concomitant]
     Active Substance: OMEPRAZOLE
     Route: 048
     Dates: start: 20200317, end: 20200322
  31. LOSEC [Concomitant]
     Active Substance: OMEPRAZOLE
     Route: 048
     Dates: start: 20200407, end: 20200412
  32. LOSEC [Concomitant]
     Active Substance: OMEPRAZOLE
     Route: 048
     Dates: start: 20200428, end: 20200503
  33. LOSEC [Concomitant]
     Active Substance: OMEPRAZOLE
     Route: 048
     Dates: start: 20200519, end: 20200524
  34. LOSEC [Concomitant]
     Active Substance: OMEPRAZOLE
     Route: 048
     Dates: start: 20200609, end: 20200614
  35. LOSEC [Concomitant]
     Active Substance: OMEPRAZOLE
     Route: 048
     Dates: start: 20200630, end: 20200705
  36. LOSEC [Concomitant]
     Active Substance: OMEPRAZOLE
     Route: 048
     Dates: start: 20200721, end: 20200726
  37. BENZYDAMINE HYDROCHLORIDE [Concomitant]
     Active Substance: BENZYDAMINE HYDROCHLORIDE
     Route: 061
     Dates: start: 20200124, end: 20200125
  38. KYTRIL [Concomitant]
     Active Substance: GRANISETRON HYDROCHLORIDE
     Route: 048
     Dates: start: 20191223
  39. MAGNESIUM [Concomitant]
     Active Substance: MAGNESIUM
     Indication: Hypomagnesaemia
     Route: 042
     Dates: start: 20200218, end: 20200218
  40. MAGNOX [Concomitant]
     Indication: Hypomagnesaemia
     Route: 042
     Dates: start: 20200219, end: 20200222
  41. MAGNOX [Concomitant]
     Route: 048
     Dates: start: 20200223, end: 20200224
  42. MAGNOX [Concomitant]
     Route: 048
     Dates: start: 20200225
  43. ZALDIAR [Concomitant]
     Active Substance: ACETAMINOPHEN\TRAMADOL HYDROCHLORIDE
     Indication: Abdominal pain upper
     Route: 048
     Dates: start: 20200210
  44. ZALDIAR [Concomitant]
     Active Substance: ACETAMINOPHEN\TRAMADOL HYDROCHLORIDE
     Indication: Back pain
  45. ACAMOL (ISRAEL) [Concomitant]
     Indication: Pyrexia
     Route: 048
     Dates: start: 20200229, end: 20200229
  46. ACETAMINOPHEN [Concomitant]
     Active Substance: ACETAMINOPHEN
     Indication: Pyrexia
     Route: 048
     Dates: start: 20200304, end: 20200304
  47. METAMIZOLE [Concomitant]
     Active Substance: METAMIZOLE
     Indication: Pyrexia
     Route: 048
     Dates: start: 20200304, end: 20200304
  48. ELIQUIS [Concomitant]
     Active Substance: APIXABAN
     Route: 048
     Dates: start: 20200317

REACTIONS (3)
  - Small intestinal haemorrhage [Recovered/Resolved]
  - Autoimmune haemolytic anaemia [Recovered/Resolved]
  - Dysarthria [Recovered/Resolved]

NARRATIVE: CASE EVENT DATE: 20200218
